FAERS Safety Report 4406663-9 (Version None)
Quarter: 2004Q3

REPORT INFORMATION
  Report Type: 
  Country: None (occurrence: None)
  Receive Date: 20040715
  Receipt Date: 20040709
  Transmission Date: 20050211
  Serious: Yes (Other)
  Sender: FDA-Public Use
  Company Number: 2004222765IN

PATIENT
  Age: 25 Year
  Sex: Female
  Weight: 47 kg

DRUGS (1)
  1. DEPO-PROVERA [Suspect]
     Indication: CONTRACEPTION
     Dosage: 150MG/3MONTHS, SINGLE INJ. INTRAMUSCULAR
     Route: 030
     Dates: start: 20040405, end: 20040405

REACTIONS (2)
  - DIZZINESS [None]
  - VOMITING [None]
